FAERS Safety Report 19814913 (Version 1)
Quarter: 2021Q3

REPORT INFORMATION
  Report Type: Spontaneous
  Country: US (occurrence: US)
  Receive Date: 20210909
  Receipt Date: 20210909
  Transmission Date: 20211014
  Serious: No
  Sender: FDA-Public Use
  Company Number: US-AMERICAN REGENT INC-2021001847

PATIENT
  Age: 30 Year
  Sex: Female
  Weight: 102.95 kg

DRUGS (2)
  1. INJECTAFER [Suspect]
     Active Substance: FERRIC CARBOXYMALTOSE
     Indication: PRODUCT USED FOR UNKNOWN INDICATION
     Dosage: UNK, SINGLE (1ST INJECTAFER ADMINSITRATION)
     Route: 065
     Dates: start: 20210708, end: 20210708
  2. INJECTAFER [Suspect]
     Active Substance: FERRIC CARBOXYMALTOSE
     Dosage: 750 MILLIGRAM, SINGLE (2ND INJECTAFER ADMINSITRATION)
     Route: 042
     Dates: start: 20210715, end: 20210715

REACTIONS (3)
  - Vomiting [Recovered/Resolved]
  - Product quality issue [Unknown]
  - Nausea [Recovered/Resolved]

NARRATIVE: CASE EVENT DATE: 20210715
